FAERS Safety Report 17461667 (Version 2)
Quarter: 2020Q2

REPORT INFORMATION
  Report Type: Spontaneous
  Country: CA (occurrence: CA)
  Receive Date: 20200226
  Receipt Date: 20200428
  Transmission Date: 20200713
  Serious: Yes (Other)
  Sender: FDA-Public Use
  Company Number: CA-PFIZER INC-2019176392

PATIENT
  Age: 71 Year
  Sex: Male

DRUGS (3)
  1. XYNTHA [Suspect]
     Active Substance: ANTIHEMOPHILIC FACTOR, HUMAN RECOMBINANT RESIDUES 743-1636 DELETED
     Dosage: 4000 IU, UNK
  2. XYNTHA [Suspect]
     Active Substance: ANTIHEMOPHILIC FACTOR, HUMAN RECOMBINANT RESIDUES 743-1636 DELETED
     Dosage: 4000 IU, UNK
     Route: 042
     Dates: start: 20190618
  3. XYNTHA [Suspect]
     Active Substance: ANTIHEMOPHILIC FACTOR, HUMAN RECOMBINANT RESIDUES 743-1636 DELETED
     Indication: FACTOR VIII DEFICIENCY
     Dosage: 4000 IU, UNK
     Route: 042
     Dates: start: 20190422

REACTIONS (6)
  - Lower respiratory tract congestion [Unknown]
  - Product dose omission [Unknown]
  - Inguinal hernia [Unknown]
  - Infusion site abscess [Unknown]
  - Incorrect route of product administration [Unknown]
  - Infection [Unknown]

NARRATIVE: CASE EVENT DATE: 20190422
